FAERS Safety Report 11859048 (Version 1)
Quarter: 2015Q4

REPORT INFORMATION
  Report Type: Spontaneous
  Country: JP (occurrence: JP)
  Receive Date: 20151222
  Receipt Date: 20151222
  Transmission Date: 20160305
  Serious: Yes (Hospitalization)
  Sender: FDA-Public Use
  Company Number: JP-009507513-1508JPN009594

PATIENT
  Age: 61 Year
  Sex: Female
  Weight: 53 kg

DRUGS (12)
  1. BRIDION [Suspect]
     Active Substance: SUGAMMADEX
     Indication: NEUROMUSCULAR BLOCKADE REVERSAL
     Dosage: DIVIDED DOSE FREQUENCY UNKNOWN, TOTAL DAILY DOSE: 200 MG
     Route: 042
  2. ULTIVA [Concomitant]
     Active Substance: REMIFENTANIL HYDROCHLORIDE
     Indication: INDUCTION OF ANAESTHESIA
     Dosage: DAILY DOSE UNKNOWN, 0.3 MICROGRAM/KG*MIN
     Route: 042
  3. ULTIVA [Concomitant]
     Active Substance: REMIFENTANIL HYDROCHLORIDE
     Indication: MAINTENANCE OF ANAESTHESIA
     Dosage: DAILY DOSE UNKNOWN, 0.20-0.30 MICROGRAM/KG*MIN
     Route: 042
  4. SUPRANE [Concomitant]
     Active Substance: DESFLURANE
     Indication: MAINTENANCE OF ANAESTHESIA
     Dosage: DAILY DOSE UNKNOWN, 3-4%
     Route: 055
  5. OXYGEN. [Concomitant]
     Active Substance: OXYGEN
     Indication: INDUCTION OF ANAESTHESIA
     Dosage: DAILY DOSE UNKNOWN, 5L/MIN
     Route: 055
  6. OXYGEN. [Concomitant]
     Active Substance: OXYGEN
     Indication: MAINTENANCE OF ANAESTHESIA
     Dosage: DAILY DOSE UNKNOWN, 2L/MIN
     Route: 055
  7. SUPRANE [Concomitant]
     Active Substance: DESFLURANE
     Dosage: DIVIDED DOSE FREQUENCY UNKNOWN, DOSE: 2 %, UNK
     Route: 055
  8. ESLAX INTRAVENOUS 50MG/5.0ML [Concomitant]
     Active Substance: ROCURONIUM BROMIDE
     Indication: NEUROMUSCULAR BLOCKING THERAPY
     Dosage: DIVIDED DOSE FREQUENCY UNKNOWN, TOTAL DAILY DOSE: 50 MG
     Route: 042
  9. FENTANYL. [Concomitant]
     Active Substance: FENTANYL
     Indication: PROCEDURAL PAIN
     Dosage: DAILY DOSE UNKNOWN, 30 MICROGRAM/HR
     Route: 041
  10. FENTANYL. [Concomitant]
     Active Substance: FENTANYL
     Dosage: DIVIDED DOSE FREQUENCY UNKNOWN, TOTAL DAILY DOSE: 100 MICROGRAM
     Route: 041
  11. PROPOFOL. [Concomitant]
     Active Substance: PROPOFOL
     Indication: INDUCTION OF ANAESTHESIA
     Dosage: DIVIDED DOSE FREQUENCY UNKNOWN, TOTAL DAILY DOSE: 100 MG
  12. ACETAMINOPHEN. [Concomitant]
     Active Substance: ACETAMINOPHEN
     Dosage: DIVIDED DOSE FREQUENCY UNKNOWN, TOTAL DAILY DOSE: 1000 MG

REACTIONS (1)
  - Stress cardiomyopathy [Recovered/Resolved]
